FAERS Safety Report 15523062 (Version 3)
Quarter: 2020Q1

REPORT INFORMATION
  Report Type: Spontaneous
  Country: PL (occurrence: PL)
  Receive Date: 20181017
  Receipt Date: 20200203
  Transmission Date: 20200409
  Serious: Yes (Hospitalization, Other)
  Sender: FDA-Public Use
  Company Number: PHHY2018PL123906

PATIENT
  Age: 21 Year
  Sex: Female
  Weight: 43.7 kg

DRUGS (3)
  1. METFORMIN [Suspect]
     Active Substance: METFORMIN HYDROCHLORIDE
     Indication: GENE MUTATION
     Dosage: 850 MG, BID
     Route: 065
  2. METFORMIN [Suspect]
     Active Substance: METFORMIN HYDROCHLORIDE
     Dosage: 1700 MG, QD
     Route: 065
  3. DUPHASTON [Concomitant]
     Active Substance: DYDROGESTERONE
     Indication: AMENORRHOEA
     Dosage: UNK
     Route: 065

REACTIONS (3)
  - Insulin resistance [Unknown]
  - Paradoxical drug reaction [Unknown]
  - Condition aggravated [Unknown]
